FAERS Safety Report 19546641 (Version 1)
Quarter: 2021Q3

REPORT INFORMATION
  Report Type: Report from Study
  Country: ES (occurrence: ES)
  Receive Date: 20210715
  Receipt Date: 20210715
  Transmission Date: 20211014
  Serious: Yes (Other)
  Sender: FDA-Public Use
  Company Number: ES-AUROBINDO-AUR-APL-2021-029350

PATIENT
  Age: 72 Year
  Sex: Male

DRUGS (2)
  1. ERTAPENEM. [Suspect]
     Active Substance: ERTAPENEM SODIUM
     Indication: ANAL ABSCESS
     Dosage: 1 GRAM, ONCE A DAY
     Route: 065
  2. TEICOPLANIN [Suspect]
     Active Substance: TEICOPLANIN
     Indication: ANAL ABSCESS
     Dosage: UNK
     Route: 065

REACTIONS (1)
  - Neurotoxicity [Unknown]
